FAERS Safety Report 8293637-3 (Version None)
Quarter: 2012Q2

REPORT INFORMATION
  Report Type: 
  Country: None (occurrence: None)
  Receive Date: 20120418
  Receipt Date: 20120409
  Transmission Date: 20120825
  Serious: No
  Sender: FDA-Public Use
  Company Number: US-BIOGENIDEC-2012BI012579

PATIENT
  Sex: Female

DRUGS (5)
  1. AVONEX [Concomitant]
     Indication: MULTIPLE SCLEROSIS
     Route: 030
  2. AVONEX [Concomitant]
     Route: 030
  3. TYSABRI [Suspect]
     Indication: MULTIPLE SCLEROSIS
     Route: 042
     Dates: start: 20111111
  4. AVONEX [Concomitant]
     Route: 030
  5. AVONEX [Concomitant]
     Route: 030
     Dates: start: 20020101, end: 20020603

REACTIONS (3)
  - ROAD TRAFFIC ACCIDENT [None]
  - INTERVERTEBRAL DISC PROTRUSION [None]
  - NECK PAIN [None]
